FAERS Safety Report 4788959-4 (Version None)
Quarter: 2005Q4

REPORT INFORMATION
  Report Type: 
  Country: None (occurrence: None)
  Receive Date: 20051004
  Receipt Date: 20050920
  Transmission Date: 20060501
  Serious: Yes (Other)
  Sender: FDA-Public Use
  Company Number: 2005130719

PATIENT
  Age: 28 Year
  Sex: Female
  Weight: 47.6277 kg

DRUGS (1)
  1. DRAMAMINE LESS DROWSY FORMULA (MECLIZINE) [Suspect]
     Dosage: 8 TABLETS ONCE, ORAL
     Route: 048
     Dates: start: 20050920, end: 20050920

REACTIONS (4)
  - MARITAL PROBLEM [None]
  - OVERDOSE [None]
  - SOMNOLENCE [None]
  - VOMITING [None]
